FAERS Safety Report 17606867 (Version 3)
Quarter: 2024Q3

REPORT INFORMATION
  Report Type: Spontaneous
  Country: GR (occurrence: GR)
  Receive Date: 20200331
  Receipt Date: 20240822
  Transmission Date: 20241016
  Serious: Yes (Death, Hospitalization, Other)
  Sender: NOVARTIS
  Company Number: None

PATIENT
  Age: 75 Year
  Sex: Male

DRUGS (3)
  1. CYCLOSPORINE [Suspect]
     Active Substance: CYCLOSPORINE
     Indication: Membranous-like glomerulopathy with masked IgG-kappa deposits
     Dosage: UNK
     Route: 065
  2. METHYLPREDNISOLONE [Suspect]
     Active Substance: METHYLPREDNISOLONE
     Indication: Membranous-like glomerulopathy with masked IgG-kappa deposits
     Dosage: UNK
     Route: 065
  3. CYCLOPHOSPHAMIDE [Suspect]
     Active Substance: CYCLOPHOSPHAMIDE
     Indication: Membranous-like glomerulopathy with masked IgG-kappa deposits
     Dosage: UNK
     Route: 065

REACTIONS (10)
  - Death [Fatal]
  - Nocardiosis [Fatal]
  - Productive cough [Fatal]
  - Dyspnoea [Fatal]
  - Fatigue [Fatal]
  - Hypoxia [Fatal]
  - Muscle abscess [Fatal]
  - Brain abscess [Fatal]
  - Subcutaneous abscess [Fatal]
  - Pulmonary nocardiosis [Fatal]
